FAERS Safety Report 12037889 (Version 1)
Quarter: 2016Q1

REPORT INFORMATION
  Report Type: Spontaneous
  Country: US (occurrence: US)
  Receive Date: 20160208
  Receipt Date: 20160208
  Transmission Date: 20160526
  Serious: Yes (Other)
  Sender: FDA-Public Use
  Company Number: US-PROCTER_AND_GAMBLE-GS16011903

PATIENT
  Age: 30 Year
  Sex: Female

DRUGS (1)
  1. CREST 3D WHITE LUXE DIAMOND STRONG [Suspect]
     Active Substance: SODIUM FLUORIDE
     Dosage: PEA SIZED AMOUNT ONLY USED IT TWICE IN TOTAL ON THE NIGHT OF THE 15TH (AFTER DINNER AND BEFORE BED)
     Route: 002
     Dates: start: 20160115, end: 20160115

REACTIONS (18)
  - Noninfective gingivitis [Recovering/Resolving]
  - Gingival erythema [Recovering/Resolving]
  - Discomfort [Recovering/Resolving]
  - Dyspnoea [Recovered/Resolved]
  - Bloody discharge [Recovering/Resolving]
  - Gingivitis [Recovering/Resolving]
  - Oral mucosal exfoliation [Recovering/Resolving]
  - Toothache [Recovering/Resolving]
  - Swelling face [Recovering/Resolving]
  - Purulent discharge [Recovering/Resolving]
  - Foreign body [Recovered/Resolved]
  - Gingival pain [Recovering/Resolving]
  - Chemical burn of gastrointestinal tract [Recovering/Resolving]
  - Gingival swelling [Recovering/Resolving]
  - Gingival discolouration [Recovering/Resolving]
  - Abscess [Recovering/Resolving]
  - Sensitivity of teeth [Recovering/Resolving]
  - Gingival disorder [Recovering/Resolving]

NARRATIVE: CASE EVENT DATE: 201601
